FAERS Safety Report 6207817-1 (Version None)
Quarter: 2009Q2

REPORT INFORMATION
  Report Type: 
  Country: None (occurrence: None)
  Receive Date: 20090528
  Receipt Date: 20090522
  Transmission Date: 20091009
  Serious: Yes (Hospitalization, Other)
  Sender: FDA-Public Use
  Company Number: CA-ELI_LILLY_AND_COMPANY-CA200904006415

PATIENT
  Age: 54 Year
  Sex: Male

DRUGS (7)
  1. FORTEO [Suspect]
     Indication: OSTEOPOROSIS
     Dosage: 20 UG, DAILY (1/D)
     Dates: start: 20090406, end: 20090515
  2. DIURETICS [Concomitant]
  3. POTASSIUM                          /00031402/ [Concomitant]
  4. CALCIUM                                 /N/A/ [Concomitant]
  5. VITAMIN A [Concomitant]
  6. VITAMIN B COMPLEX CAP [Concomitant]
  7. VITAMIN C                          /00008001/ [Concomitant]

REACTIONS (6)
  - ASCITES [None]
  - HEPATIC NEOPLASM [None]
  - HEPATIC NEOPLASM MALIGNANT [None]
  - HOSPITALISATION [None]
  - NAUSEA [None]
  - VOMITING [None]
